FAERS Safety Report 16612004 (Version 1)
Quarter: 2019Q3

REPORT INFORMATION
  Report Type: Spontaneous
  Country: FR (occurrence: FR)
  Receive Date: 20190722
  Receipt Date: 20190722
  Transmission Date: 20191004
  Serious: Yes (Hospitalization)
  Sender: FDA-Public Use
  Company Number: FR-ANIPHARMA-2019-FR-000165

PATIENT
  Age: 64 Year
  Sex: Male

DRUGS (4)
  1. METHOTREXATE. [Suspect]
     Active Substance: METHOTREXATE
     Dosage: 20 MG WEEK
     Route: 058
     Dates: start: 20070210
  2. OLUMIANT [Suspect]
     Active Substance: BARICITINIB
     Dosage: 4 MG UNK
     Route: 048
     Dates: start: 20180410
  3. CANDESARTAN CILEXETIL. [Suspect]
     Active Substance: CANDESARTAN CILEXETIL
     Indication: HYPERTENSION
     Dosage: 16 MG UNK
     Route: 048
     Dates: start: 20180915
  4. FOLIC ACID. [Suspect]
     Active Substance: FOLIC ACID
     Dosage: 15 MG UNK
     Route: 048
     Dates: start: 20070210

REACTIONS (1)
  - Retinal artery occlusion [Not Recovered/Not Resolved]

NARRATIVE: CASE EVENT DATE: 20190602
